FAERS Safety Report 4831604-X (Version None)
Quarter: 2005Q4

REPORT INFORMATION
  Report Type: 
  Country: None (occurrence: None)
  Receive Date: 20051118
  Receipt Date: 20050929
  Transmission Date: 20060501
  Serious: Yes (Hospitalization, Disabling)
  Sender: FDA-Public Use
  Company Number: US-MERCK-0510USA00529

PATIENT
  Age: 60 Year
  Sex: Male
  Weight: 98 kg

DRUGS (23)
  1. VIOXX [Suspect]
     Indication: MONARTHRITIS
     Route: 048
     Dates: start: 19991201, end: 20040101
  2. PHENOBARBITAL [Concomitant]
     Route: 065
  3. WARFARIN [Concomitant]
     Route: 065
  4. MEVACOR [Concomitant]
     Route: 065
  5. CLEMASTINE [Concomitant]
     Route: 065
  6. POTASSIUM (UNSPECIFIED) [Concomitant]
     Route: 065
  7. PHENYTOIN [Concomitant]
     Route: 065
  8. DURAGESIC-100 [Concomitant]
     Route: 065
  9. COMBIVENT [Concomitant]
     Route: 065
  10. HYDROCODONE BITARTRATE [Concomitant]
     Route: 065
  11. RIFAMPIN [Concomitant]
     Route: 065
  12. DOXYCYCLINE [Concomitant]
     Route: 065
  13. WELLBUTRIN [Concomitant]
     Route: 065
  14. CARDURA [Concomitant]
     Route: 065
  15. FLOMAX [Concomitant]
     Route: 065
  16. PREVACID [Concomitant]
     Route: 065
  17. CEPHALEXIN [Concomitant]
     Route: 065
  18. PERCOCET [Concomitant]
     Route: 065
  19. PEPCID [Concomitant]
     Route: 065
  20. PREVPAC [Concomitant]
     Route: 065
  21. ANDROGEL [Concomitant]
     Route: 065
  22. DONNATAL [Concomitant]
     Route: 065
  23. TEGRETOL-XR [Concomitant]
     Route: 065

REACTIONS (10)
  - ABDOMINAL PAIN [None]
  - CONVULSION [None]
  - DIZZINESS [None]
  - FALL [None]
  - MONARTHRITIS [None]
  - MYOCARDIAL INFARCTION [None]
  - PROSTATE EXAMINATION ABNORMAL [None]
  - ROAD TRAFFIC ACCIDENT [None]
  - SYNCOPE [None]
  - WRIST FRACTURE [None]
